FAERS Safety Report 6760219-1 (Version None)
Quarter: 2010Q2

REPORT INFORMATION
  Report Type: 
  Country: None (occurrence: None)
  Receive Date: 20100608
  Receipt Date: 20000511
  Transmission Date: 20101027
  Serious: No
  Sender: FDA-Public Use
  Company Number: 2000SUS0388

PATIENT
  Age: 28 Year
  Sex: Female
  Weight: 60 kg

DRUGS (8)
  1. SUSTIVA [Suspect]
     Indication: HIV INFECTION
     Dosage: 600 MG AES#DOSE_FREQUENCY: QHS
     Route: 048
     Dates: start: 19991201
  2. LAMIVUDINE [Concomitant]
     Dosage: 150 MG AES#DOSE_FREQUENCY: BID
     Route: 048
     Dates: start: 19991201
  3. STAVUDINE [Concomitant]
     Dosage: 40 MG AES#DOSE_FREQUENCY: BID
     Route: 048
     Dates: start: 19991201
  4. AZITHROMYCIN [Concomitant]
     Dosage: AES#DOSE_SP_01: 1200 MG WEEKLY
     Route: 065
  5. MEPRON [Concomitant]
     Dosage: 1500 MG AES#DOSE_FREQUENCY: QD
     Route: 065
     Dates: start: 19991201
  6. EPOETIN ALFA [Concomitant]
     Dosage: AES#DOSE_SP_01: 20,000 UNITS WEEKLY
     Route: 065
  7. BICITRA [Concomitant]
     Dosage: 30 ML AES#DOSE_FREQUENCY: BID
     Route: 048
  8. MULTI-VITAMIN [Concomitant]

REACTIONS (2)
  - PREGNANCY [None]
  - RENAL FAILURE [None]
